FAERS Safety Report 20756010 (Version 1)
Quarter: 2022Q2

REPORT INFORMATION
  Report Type: Spontaneous
  Country: US (occurrence: None)
  Receive Date: 20220426
  Receipt Date: 20220426
  Transmission Date: 20220720
  Serious: Yes (Death)
  Sender: FDA-Public Use
  Company Number: None

PATIENT
  Age: 65 Year
  Sex: Female

DRUGS (1)
  1. XEOMIN [Suspect]
     Active Substance: INCOBOTULINUMTOXINA
     Indication: Hemiplegia
     Dosage: OTHER QUANTITY : 200 UNIT;?FREQUENCY : AS DIRECTED;?
     Route: 030
     Dates: start: 20211111, end: 20220321

REACTIONS (1)
  - Death [None]

NARRATIVE: CASE EVENT DATE: 20220321
